FAERS Safety Report 20793332 (Version 1)
Quarter: 2022Q2

REPORT INFORMATION
  Report Type: Spontaneous
  Country: US (occurrence: US)
  Receive Date: 20220506
  Receipt Date: 20220506
  Transmission Date: 20220721
  Serious: Yes (Other)
  Sender: FDA-Public Use
  Company Number: US-SUN PHARMACEUTICAL INDUSTRIES LTD-2022R1-335112

PATIENT
  Sex: Female
  Weight: 77 kg

DRUGS (2)
  1. PREDNISONE [Suspect]
     Active Substance: PREDNISONE
     Indication: Multisystem inflammatory syndrome in children
     Dosage: UNK, TAPER OVER 3 WEEKS
     Route: 048
  2. ASPIRIN [Concomitant]
     Active Substance: ASPIRIN
     Indication: Multisystem inflammatory syndrome in children
     Dosage: 81 MILLIGRAM, DAILY
     Route: 065

REACTIONS (1)
  - Neutrophilia [Unknown]
